FAERS Safety Report 6077761 (Version 1)
Quarter: 2020Q3

REPORT INFORMATION
  Report Type: Spontaneous
  Country: GB (occurrence: GB)
  Receive Date: 20060706
  Receipt Date: 20060706
  Transmission Date: 20201104
  Serious: Yes (Life-Threatening)
  Sender: FDA-Public Use
  Company Number: GB-ROCHE-452723

PATIENT
  Age: 62 Year
  Sex: Female

DRUGS (9)
  1. SENNA LEAF [Concomitant]
     Active Substance: SENNA LEAF
     Route: 065
  2. LACTULOSE. [Concomitant]
     Active Substance: LACTULOSE
     Route: 065
  3. IBANDRONIC ACID. [Suspect]
     Active Substance: IBANDRONIC ACID
     Indication: PROPHYLAXIS
     Route: 048
     Dates: start: 20060516, end: 20060609
  4. AMITRIPTYLINE [Concomitant]
     Active Substance: AMITRIPTYLINE
     Route: 048
  5. OXYCONTIN [Concomitant]
     Active Substance: OXYCODONE HYDROCHLORIDE
     Route: 048
  6. DICLOFENAC [Concomitant]
     Active Substance: DICLOFENAC
     Route: 048
  7. FRUSEMIDE [Concomitant]
     Active Substance: FUROSEMIDE
     Route: 048
  8. PARACETAMOL [Concomitant]
     Active Substance: ACETAMINOPHEN
     Route: 065
  9. ZOPICLONE [Concomitant]
     Active Substance: ZOPICLONE
     Route: 065

REACTIONS (3)
  - Hypomagnesaemia [Recovering/Resolving]
  - Hypokalaemia [Recovering/Resolving]
  - Hypocalcaemia [Recovering/Resolving]

NARRATIVE: CASE EVENT DATE: 20060609
